FAERS Safety Report 12317808 (Version 2)
Quarter: 2016Q2

REPORT INFORMATION
  Report Type: Spontaneous
  Country: US (occurrence: US)
  Receive Date: 20160429
  Receipt Date: 20160630
  Transmission Date: 20160815
  Serious: Yes (Death)
  Sender: FDA-Public Use
  Company Number: US-PFIZER INC-2016223786

PATIENT
  Age: 70 Year
  Sex: Male

DRUGS (6)
  1. CARVEDILOL. [Suspect]
     Active Substance: CARVEDILOL
     Indication: CARDIAC DISORDER
     Dosage: ONE AND HALF DF, DAILY
  2. NITROSTAT [Suspect]
     Active Substance: NITROGLYCERIN
     Dosage: UNK
  3. CLAVIX [Concomitant]
     Indication: CARDIAC DISORDER
     Dosage: 75 MG, 1X/DAY
  4. ATORVASTATIN CALCIUM. [Suspect]
     Active Substance: ATORVASTATIN CALCIUM
     Indication: CARDIAC DISORDER
     Dosage: 40 MG, 1X/DAY
  5. LIPITOR [Suspect]
     Active Substance: ATORVASTATIN CALCIUM
     Indication: CARDIAC DISORDER
     Dosage: 40 MG, 1X/DAY
     Route: 048
  6. LISINOPRIL. [Concomitant]
     Active Substance: LISINOPRIL
     Dosage: 5 MG, 1X/DAY, ONE TIME A DAY

REACTIONS (2)
  - Myocardial infarction [Fatal]
  - Intentional product misuse [Unknown]
